FAERS Safety Report 8904245 (Version 1)
Quarter: 2012Q4

REPORT INFORMATION
  Report Type: 
  Country: US (occurrence: US)
  Receive Date: 20121112
  Receipt Date: 20121112
  Transmission Date: 20130627
  Serious: Yes (Other)
  Sender: FDA-Public Use
  Company Number: US-ASTRAZENECA-2012SE83658

PATIENT
  Age: 68 Year
  Sex: Male

DRUGS (11)
  1. NEXIUM [Suspect]
     Indication: GASTROOESOPHAGEAL REFLUX DISEASE
     Route: 048
  2. PRILOSEC [Suspect]
     Indication: GASTROOESOPHAGEAL REFLUX DISEASE
     Route: 048
     Dates: end: 201210
  3. DILTIAZEM [Concomitant]
     Indication: CARDIAC DISORDER
     Route: 048
  4. MEVACOR [Concomitant]
     Indication: BLOOD CHOLESTEROL ABNORMAL
     Dates: start: 2012
  5. ASTELIN NASAL SPRAY [Concomitant]
     Indication: SINUSITIS
     Dosage: AS REQUIRED
     Route: 045
  6. FLONASE [Concomitant]
     Indication: SINUSITIS
     Dosage: AS REQUIRED
     Route: 045
  7. VIGAMOX [Concomitant]
     Indication: EYE DISORDER
  8. B12 SHOT [Concomitant]
     Indication: SUPPLEMENTATION THERAPY
     Dosage: MONTH
  9. MULTIVITAMIN [Concomitant]
     Indication: SUPPLEMENTATION THERAPY
     Dosage: DAILY
     Route: 048
  10. PENTASA [Concomitant]
     Indication: CROHN^S DISEASE
  11. ASPIRIN [Concomitant]
     Indication: ANTICOAGULANT THERAPY
     Route: 048

REACTIONS (12)
  - Aortic aneurysm [Unknown]
  - Coronary artery occlusion [Unknown]
  - Throat cancer [Unknown]
  - Crohn^s disease [Unknown]
  - Muscular weakness [Unknown]
  - Gait disturbance [Unknown]
  - Adverse event [Unknown]
  - Gastric disorder [Unknown]
  - Barrett^s oesophagus [Unknown]
  - Pain in extremity [Unknown]
  - Dyspepsia [Unknown]
  - Vomiting [Unknown]
